FAERS Safety Report 5495528-X (Version None)
Quarter: 2007Q4

REPORT INFORMATION
  Report Type: 
  Country: None (occurrence: None)
  Receive Date: 20071018
  Receipt Date: 20061211
  Transmission Date: 20080405
  Serious: Yes (Other)
  Sender: FDA-Public Use
  Company Number: 2005116457

PATIENT
  Sex: Female

DRUGS (13)
  1. NEURONTIN [Suspect]
     Indication: NEURALGIA
     Dosage: 300 MG (100 MG, 3 IN 1 D), ORAL
     Route: 048
     Dates: start: 20020602
  2. LORTAB [Concomitant]
  3. RESTORIL [Concomitant]
  4. RELAFEN [Concomitant]
  5. EFFEXOR XR [Concomitant]
  6. DARVOCET-N 100 [Concomitant]
  7. ULTRAM [Concomitant]
  8. IBUPROFEN [Concomitant]
  9. FLEXERIL [Concomitant]
  10. VENTOLIN [Concomitant]
  11. MONTELUKAST SODIUM [Concomitant]
  12. ADVAIR DISKUS 100/50 [Concomitant]
  13. NORVASC [Concomitant]

REACTIONS (3)
  - DRUG INEFFECTIVE [None]
  - SUICIDAL IDEATION [None]
  - SUICIDE ATTEMPT [None]
